FAERS Safety Report 9270603 (Version 1)
Quarter: 2013Q2

REPORT INFORMATION
  Report Type: Spontaneous
  Country: GB (occurrence: GB)
  Receive Date: 20130506
  Receipt Date: 20130506
  Transmission Date: 20140414
  Serious: Yes (Other)
  Sender: FDA-Public Use
  Company Number: GB-AMGEN-GBRSP2013030496

PATIENT
  Age: 50 Year
  Sex: Female
  Weight: 59 kg

DRUGS (6)
  1. FILGRASTIM [Suspect]
     Indication: NEUTROPENIA
     Dosage: 300 MUG, 1/1DAY
     Route: 058
     Dates: start: 20130212, end: 20130213
  2. PEGFILGRASTIM [Suspect]
     Indication: NEUTROPENIA
     Dosage: 6 MG, UNK
     Route: 058
     Dates: start: 20130212, end: 20130213
  3. CARBOPLATIN [Concomitant]
     Dosage: UNK
  4. DEXAMETHASONE [Concomitant]
     Dosage: UNK
  5. ONDANSETRON [Concomitant]
     Dosage: UNK
  6. PACLITAXEL [Concomitant]
     Dosage: UNK

REACTIONS (5)
  - Suicidal ideation [Recovered/Resolved]
  - Nightmare [Recovered/Resolved]
  - Depressed mood [Recovered/Resolved]
  - Abdominal pain [Recovered/Resolved]
  - Vomiting [Recovered/Resolved]
